FAERS Safety Report 4402942-X (Version None)
Quarter: 2004Q3

REPORT INFORMATION
  Report Type: 
  Country: None (occurrence: None)
  Receive Date: 20040721
  Receipt Date: 20030702
  Transmission Date: 20050211
  Serious: No
  Sender: FDA-Public Use
  Company Number: US-GLAXOSMITHKLINE-A0415771A

PATIENT
  Age: 61 Year
  Sex: Female

DRUGS (6)
  1. IMITREX [Suspect]
     Indication: MIGRAINE
     Route: 048
  2. CELEBREX [Concomitant]
  3. NEXIUM [Concomitant]
  4. SYNTHROID [Concomitant]
  5. PHENERGAN [Concomitant]
  6. FIORINAL [Concomitant]

REACTIONS (2)
  - NAUSEA [None]
  - VOMITING [None]
